FAERS Safety Report 9032723 (Version 1)
Quarter: 2013Q1

REPORT INFORMATION
  Report Type: Spontaneous
  Country: US (occurrence: US)
  Receive Date: 20130128
  Receipt Date: 20130128
  Transmission Date: 20140127
  Serious: Yes (Hospitalization)
  Sender: FDA-Public Use
  Company Number: US-BIOGENIDEC-2012BI062790

PATIENT
  Age: 63 Year
  Sex: Female

DRUGS (9)
  1. AVONEX [Suspect]
     Indication: MULTIPLE SCLEROSIS
     Route: 030
     Dates: start: 20100908
  2. CRESTOR [Concomitant]
  3. VITAMIN B12 [Concomitant]
  4. PAXIL [Concomitant]
  5. LEVOXYL [Concomitant]
  6. HYZAAR [Concomitant]
  7. POTASSIUM SUPPLEMENTS [Concomitant]
  8. XANAX [Concomitant]
  9. OXYCODONE [Concomitant]

REACTIONS (3)
  - Transient ischaemic attack [Unknown]
  - Multiple sclerosis relapse [Recovered/Resolved]
  - Convulsion [Unknown]
